FAERS Safety Report 4896267-6 (Version None)
Quarter: 2006Q1

REPORT INFORMATION
  Report Type: 
  Country: None (occurrence: None)
  Receive Date: 20060126
  Receipt Date: 20060114
  Transmission Date: 20060701
  Serious: Yes (Other)
  Sender: FDA-Public Use
  Company Number: 2005163486

PATIENT
  Age: 40 Year
  Sex: Female
  Weight: 67.586 kg

DRUGS (1)
  1. LYRICA [Suspect]
     Indication: ILL-DEFINED DISORDER
     Dosage: 150 MG (50 MG, 3 IN 1 D); UNKNOWN
     Dates: start: 20051111

REACTIONS (5)
  - AGITATION [None]
  - DEPRESSION [None]
  - HYPERSOMNIA [None]
  - MOOD SWINGS [None]
  - SUICIDAL IDEATION [None]
